FAERS Safety Report 12318421 (Version 1)
Quarter: 2016Q2

REPORT INFORMATION
  Report Type: Spontaneous
  Country: US (occurrence: None)
  Receive Date: 20160428
  Receipt Date: 20160428
  Transmission Date: 20160815
  Serious: No
  Sender: FDA-Public Use
  Company Number: None

PATIENT
  Age: 50 Year
  Sex: Male
  Weight: 128.82 kg

DRUGS (2)
  1. GLYCINE 1.5% 3000CC BAG BRAUN [Suspect]
     Active Substance: GLYCINE
     Indication: WOUND TREATMENT
     Dosage: 1500CC OPEN WOUND
     Dates: start: 20160425
  2. GLYCINE 1.5% 3000CC BAG BRAUN [Suspect]
     Active Substance: GLYCINE
     Indication: HIP SURGERY
     Dosage: 1500CC OPEN WOUND
     Dates: start: 20160425

REACTIONS (3)
  - Product label confusion [None]
  - Wrong drug administered [None]
  - Incorrect product storage [None]

NARRATIVE: CASE EVENT DATE: 20160425
